FAERS Safety Report 12845048 (Version 1)
Quarter: 2016Q4

REPORT INFORMATION
  Report Type: Spontaneous
  Country: US (occurrence: US)
  Receive Date: 20161013
  Receipt Date: 20161013
  Transmission Date: 20170207
  Serious: No
  Sender: FDA-Public Use
  Company Number: US-CELGENEUS-USA-2016101904

PATIENT
  Sex: Male
  Weight: 94.43 kg

DRUGS (4)
  1. CARDURA [Concomitant]
     Active Substance: DOXAZOSIN MESYLATE
     Indication: PROSTATIC DISORDER
     Route: 065
  2. REVLIMID [Suspect]
     Active Substance: LENALIDOMIDE
     Route: 048
     Dates: start: 201602
  3. FLOMAX [Concomitant]
     Active Substance: TAMSULOSIN HYDROCHLORIDE
     Indication: PRODUCT USED FOR UNKNOWN INDICATION
     Route: 065
     Dates: start: 201609
  4. REVLIMID [Suspect]
     Active Substance: LENALIDOMIDE
     Indication: PLASMA CELL MYELOMA
     Route: 048
     Dates: start: 20141030

REACTIONS (2)
  - Prostatic disorder [Recovered/Resolved]
  - Hypotension [Recovered/Resolved]
